FAERS Safety Report 6274924-7 (Version None)
Quarter: 2009Q3

REPORT INFORMATION
  Report Type: 
  Country: None (occurrence: None)
  Receive Date: 20090721
  Receipt Date: 20090713
  Transmission Date: 20100115
  Serious: Yes (Other)
  Sender: FDA-Public Use
  Company Number: US-JNJFOC-20090704042

PATIENT
  Sex: Female

DRUGS (3)
  1. TOPAMAX [Suspect]
     Indication: CONVULSION
     Route: 048
  2. TEGRETOL [Concomitant]
     Route: 065
  3. BETASERON [Concomitant]
     Indication: MULTIPLE SCLEROSIS
     Route: 058

REACTIONS (2)
  - HALLUCINATION [None]
  - MULTIPLE SCLEROSIS [None]
